FAERS Safety Report 10768901 (Version 1)
Quarter: 2015Q1

REPORT INFORMATION
  Report Type: Report from Study
  Country: GB (occurrence: GB)
  Receive Date: 20150206
  Receipt Date: 20150206
  Transmission Date: 20150721
  Serious: Yes (Other)
  Sender: FDA-Public Use
  Company Number: GB-BAYER-2015-014318

PATIENT
  Age: 41 Year
  Sex: Female

DRUGS (1)
  1. BETAFERON [Suspect]
     Active Substance: INTERFERON BETA-1B
     Indication: MULTIPLE SCLEROSIS
     Dosage: 300 ?G, QOD
     Route: 058
     Dates: start: 201209

REACTIONS (2)
  - Fatigue [None]
  - Multiple sclerosis relapse [None]

NARRATIVE: CASE EVENT DATE: 201410
